FAERS Safety Report 8582840-0 (Version None)
Quarter: 2012Q3

REPORT INFORMATION
  Report Type: 
  Country: None (occurrence: None)
  Receive Date: 20120809
  Receipt Date: 20120718
  Transmission Date: 20120928
  Serious: Yes (Death, Hospitalization)
  Sender: FDA-Public Use
  Company Number: IN-ROCHE-GNE294054

PATIENT
  Age: 65 Year
  Sex: Male
  Weight: 65.07 kg

DRUGS (1)
  1. ACTIVASE [Suspect]
     Indication: ISCHAEMIC STROKE
     Dosage: 0.9 MG/KG, UNK
     Route: 042
     Dates: start: 20091109, end: 20091109

REACTIONS (2)
  - DEATH [None]
  - CEREBRAL HAEMORRHAGE [None]
